FAERS Safety Report 15601291 (Version 1)
Quarter: 2018Q4

REPORT INFORMATION
  Report Type: Spontaneous
  Country: US (occurrence: US)
  Receive Date: 20181108
  Receipt Date: 20181108
  Transmission Date: 20190205
  Serious: No
  Sender: FDA-Public Use
  Company Number: None

PATIENT
  Age: 16 Year
  Sex: Female
  Weight: 54.45 kg

DRUGS (2)
  1. ABILIFY [Suspect]
     Active Substance: ARIPIPRAZOLE
     Route: 048
     Dates: start: 20180831, end: 20180902
  2. BENADRYL 25MG PO QHS PRN SLEEP [Concomitant]
     Dates: start: 20180831, end: 20180905

REACTIONS (1)
  - Headache [None]

NARRATIVE: CASE EVENT DATE: 20180903
